FAERS Safety Report 8124176-8 (Version None)
Quarter: 2012Q1

REPORT INFORMATION
  Report Type: 
  Country: None (occurrence: None)
  Receive Date: 20120209
  Receipt Date: 20120206
  Transmission Date: 20120608
  Serious: Yes (Life-Threatening, Other)
  Sender: FDA-Public Use
  Company Number: JP-BAYER-2011-070255

PATIENT
  Age: 63 Year
  Sex: Male
  Weight: 57 kg

DRUGS (10)
  1. NEXAVAR [Suspect]
     Dosage: DAILY DOSE 800 MG
     Route: 048
     Dates: start: 20110705, end: 20110803
  2. LIVACT [Concomitant]
     Dosage: DAILY DOSE 12.45 G
     Route: 048
  3. CYTOTEC [Concomitant]
     Indication: PAIN PROPHYLAXIS
     Dosage: DAILY DOSE 800 ?G
     Route: 048
     Dates: start: 20110719
  4. RABEPRAZOLE SODIUM [Concomitant]
     Indication: PROPHYLAXIS
     Dosage: DAILY DOSE 40 MG
     Route: 048
  5. RABEPRAZOLE SODIUM [Concomitant]
     Indication: PROPHYLAXIS AGAINST GASTROINTESTINAL ULCER
  6. MEFENAMIC ACID [Suspect]
     Dosage: DAILY DOSE 250 MG
     Route: 048
     Dates: start: 20110719
  7. SUCRALFATE [Concomitant]
     Indication: PROPHYLAXIS AGAINST GASTROINTESTINAL ULCER
     Dosage: DAILY DOSE 30 ML
     Route: 048
  8. PROMAC [POLAPREZINC] [Concomitant]
     Indication: PROPHYLAXIS AGAINST GASTROINTESTINAL ULCER
     Dosage: DAILY DOSE 150 MG
     Route: 048
  9. NEXAVAR [Suspect]
     Indication: HEPATIC NEOPLASM MALIGNANT
     Dosage: 400 MG, QD
     Route: 048
     Dates: start: 20110621, end: 20110704
  10. BARACLUDE [Concomitant]
     Dosage: DAILY DOSE .5 MG
     Route: 048

REACTIONS (6)
  - DECREASED APPETITE [None]
  - PYLORIC STENOSIS [None]
  - ABDOMINAL PAIN UPPER [None]
  - FAECES DISCOLOURED [None]
  - GASTRIC ULCER [None]
  - HAEMATEMESIS [None]
